FAERS Safety Report 5231508-7 (Version None)
Quarter: 2007Q1

REPORT INFORMATION
  Report Type: 
  Country: None (occurrence: None)
  Receive Date: 20070206
  Receipt Date: 20070125
  Transmission Date: 20070707
  Serious: Yes (Hospitalization)
  Sender: FDA-Public Use
  Company Number: BR-GILEAD-2007-0011102

PATIENT
  Sex: Male

DRUGS (14)
  1. VIREAD [Suspect]
     Indication: HIV INFECTION
     Dates: end: 20070102
  2. DARUNAVIR [Suspect]
     Indication: HIV INFECTION
     Route: 048
     Dates: start: 20050414, end: 20061218
  3. ABELCET [Concomitant]
     Indication: FUNGAL INFECTION
     Dates: start: 20061201, end: 20061228
  4. LAMIVUDINE [Concomitant]
     Indication: HIV INFECTION
     Route: 048
     Dates: start: 20061228, end: 20070104
  5. LAMIVUDINE [Concomitant]
     Dates: start: 20060627, end: 20061219
  6. LAMIVUDINE [Concomitant]
     Dates: start: 20051111
  7. LAMIVUDINE [Concomitant]
     Route: 048
     Dates: start: 20041201
  8. ZIDOVUDINE [Concomitant]
     Indication: HIV INFECTION
     Route: 048
     Dates: start: 20061228, end: 20070103
  9. ZIDOVUDINE [Concomitant]
     Route: 048
     Dates: start: 20060627, end: 20061219
  10. ZIDOVUDINE [Concomitant]
     Route: 048
     Dates: start: 20030414
  11. FUROSEMIDE [Concomitant]
     Route: 048
     Dates: start: 20060627
  12. FUROSEMIDE [Concomitant]
     Route: 048
     Dates: start: 20060609
  13. LOPERAMIDE HCL [Concomitant]
     Indication: DIARRHOEA
     Route: 048
  14. ACETAMINOPHEN [Concomitant]
     Indication: INFLUENZA
     Route: 048
     Dates: start: 20050509

REACTIONS (3)
  - ANAEMIA [None]
  - PYREXIA [None]
  - RENAL FAILURE [None]
